FAERS Safety Report 12950578 (Version 2)
Quarter: 2017Q4

REPORT INFORMATION
  Report Type: Spontaneous
  Country: US (occurrence: US)
  Receive Date: 20161116
  Receipt Date: 20171116
  Transmission Date: 20180320
  Serious: No
  Sender: FDA-Public Use
  Company Number: US-ZYDUS-009344

PATIENT
  Age: 56 Year
  Sex: Male

DRUGS (11)
  1. LEVOTHYROXINE/LEVOTHYROXINE SODIUM [Concomitant]
     Indication: HYPOTHYROIDISM
  2. MORPHINE [Suspect]
     Active Substance: MORPHINE
     Indication: PAIN
     Route: 048
     Dates: start: 20151013, end: 201705
  3. LIOTHYRONINE [Concomitant]
     Active Substance: LIOTHYRONINE
     Indication: PRODUCT USED FOR UNKNOWN INDICATION
     Route: 065
  4. MORPHINE [Suspect]
     Active Substance: MORPHINE
     Indication: PAIN
     Route: 048
     Dates: start: 20170626, end: 20170710
  5. ACETYLSALICYLIC ACID [Concomitant]
     Active Substance: ASPIRIN
     Indication: PRODUCT USED FOR UNKNOWN INDICATION
     Route: 065
  6. CHORIONIC GONADOTROPHIN [Concomitant]
     Active Substance: CHORIOGONADOTROPIN ALFA
     Indication: PRODUCT USED FOR UNKNOWN INDICATION
     Route: 065
  7. LOSARTAN. [Concomitant]
     Active Substance: LOSARTAN
     Indication: HYPERTENSION
  8. TESTOSTERONE/TESTOSTERONE CIPIONATE/TESTOSTERONE CYCLOHEXYL PROPIO/TESTOSTERONE DECANOATE/TESTOSTERO [Concomitant]
     Indication: HYPOTHALAMO-PITUITARY DISORDER
  9. ANASTROZOLE. [Concomitant]
     Active Substance: ANASTROZOLE
     Indication: HYPOTHALAMO-PITUITARY DISORDER
  10. ANASTROZOLE. [Concomitant]
     Active Substance: ANASTROZOLE
     Indication: PRODUCT USED FOR UNKNOWN INDICATION
     Route: 065
  11. HYDROCHLOROTHIAZIDE/TRIAMTERENE [Concomitant]
     Indication: HYPERTENSION

REACTIONS (13)
  - Sneezing [Recovered/Resolved]
  - Retching [Recovered/Resolved]
  - Diarrhoea [Recovered/Resolved]
  - Drug ineffective [Recovered/Resolved]
  - Hyperhidrosis [Unknown]
  - Sneezing [Unknown]
  - Nausea [Recovered/Resolved]
  - Vomiting [Recovered/Resolved]
  - Drug detoxification [Unknown]
  - Drug ineffective [Unknown]
  - Lacrimation increased [Recovered/Resolved]
  - Detoxification [Recovered/Resolved]
  - Constipation [Not Recovered/Not Resolved]

NARRATIVE: CASE EVENT DATE: 20151013
